FAERS Safety Report 23994268 (Version 2)
Quarter: 2024Q3

REPORT INFORMATION
  Report Type: Spontaneous
  Country: ES (occurrence: ES)
  Receive Date: 20240620
  Receipt Date: 20240708
  Transmission Date: 20241017
  Serious: Yes (Other)
  Sender: INCYTE
  Company Number: ES-INCYTE CORPORATION-2024IN006413

PATIENT

DRUGS (1)
  1. TAFASITAMAB [Suspect]
     Active Substance: TAFASITAMAB
     Indication: Diffuse large B-cell lymphoma
     Dosage: 12 MILLIGRAM/KILOGRAM (648MG), DAY +1, +4 AND +7 +15 AND +22 (TOTAL 648MG)
     Route: 042
     Dates: start: 20240604

REACTIONS (5)
  - Partial seizures [Not Recovered/Not Resolved]
  - Syncope [Not Recovered/Not Resolved]
  - Presyncope [Not Recovered/Not Resolved]
  - Dizziness [Not Recovered/Not Resolved]
  - Nausea [Not Recovered/Not Resolved]
